FAERS Safety Report 7131727-9 (Version None)
Quarter: 2010Q4

REPORT INFORMATION
  Report Type: 
  Country: None (occurrence: None)
  Receive Date: 20101202
  Receipt Date: 20101117
  Transmission Date: 20110411
  Serious: Yes (Life-Threatening, Hospitalization, Other)
  Sender: FDA-Public Use
  Company Number: FR-ELI_LILLY_AND_COMPANY-FR201011005234

PATIENT
  Age: 43 Year
  Sex: Female

DRUGS (4)
  1. CYMBALTA [Suspect]
     Indication: DEPRESSION
     Dosage: UNK, UNK
     Route: 048
     Dates: start: 20080101
  2. MEPRONIZINE [Concomitant]
  3. ANXIOLYTICS [Concomitant]
     Indication: ANXIETY
  4. LINDILANE [Concomitant]
     Indication: PAIN

REACTIONS (2)
  - ANAEMIA [None]
  - GASTRIC ULCER [None]
